FAERS Safety Report 23558967 (Version 1)
Quarter: 2024Q1

REPORT INFORMATION
  Report Type: Spontaneous
  Country: US (occurrence: None)
  Receive Date: 20240223
  Receipt Date: 20240223
  Transmission Date: 20240410
  Serious: Yes (Death)
  Sender: FDA-Public Use
  Company Number: None

PATIENT
  Age: 59 Year
  Sex: Female

DRUGS (3)
  1. AIMOVIG [Suspect]
     Active Substance: ERENUMAB-AOOE
     Indication: Migraine
     Dosage: 70MG/ML MONTHLY SUBCUTANEOUS?
     Route: 058
     Dates: start: 20200211
  2. UBRELVY [Suspect]
     Active Substance: UBROGEPANT
     Dosage: 100MG 1T THREE TIMES WEEKLY PRN?
     Dates: start: 20210630
  3. PROLIA [Concomitant]
     Active Substance: DENOSUMAB

REACTIONS (1)
  - Death [None]

NARRATIVE: CASE EVENT DATE: 20240213
